FAERS Safety Report 16552078 (Version 2)
Quarter: 2020Q2

REPORT INFORMATION
  Report Type: Spontaneous
  Country: GB (occurrence: GB)
  Receive Date: 20190710
  Receipt Date: 20200416
  Transmission Date: 20200713
  Serious: Yes (Hospitalization, Other)
  Sender: FDA-Public Use
  Company Number: PHHY2019GB156406

PATIENT
  Age: 3 Year
  Sex: Male
  Weight: 16 kg

DRUGS (5)
  1. MONTELUKAST [Suspect]
     Active Substance: MONTELUKAST SODIUM
     Indication: ASTHMA
     Dosage: 4 MG, QD (EVERY EVENING)
     Route: 048
     Dates: start: 20150524, end: 20190512
  2. MONTELUKAST [Suspect]
     Active Substance: MONTELUKAST SODIUM
     Dosage: 4 UNK
     Route: 048
     Dates: start: 20191201, end: 20191202
  3. SALBUTAMOL [Concomitant]
     Active Substance: ALBUTEROL
     Route: 065
  4. SALBUTAMOL [Concomitant]
     Active Substance: ALBUTEROL
     Indication: ILL-DEFINED DISORDER
     Route: 065
  5. CLENIL MODULITE [Concomitant]
     Active Substance: BECLOMETHASONE DIPROPIONATE
     Indication: ILL-DEFINED DISORDER
     Route: 065

REACTIONS (13)
  - Pruritus [Unknown]
  - Irritability [Unknown]
  - Anxiety [Recovered/Resolved with Sequelae]
  - Aggression [Recovered/Resolved]
  - Nightmare [Unknown]
  - Pyrexia [Recovered/Resolved]
  - Anger [Recovered/Resolved]
  - Nightmare [Recovered/Resolved]
  - Paranoia [Unknown]
  - Obsessive-compulsive symptom [Unknown]
  - Thinking abnormal [Unknown]
  - Tremor [Recovered/Resolved]
  - Psychomotor hyperactivity [Unknown]

NARRATIVE: CASE EVENT DATE: 20191201
